FAERS Safety Report 13014952 (Version 1)
Quarter: 2016Q4

REPORT INFORMATION
  Report Type: Spontaneous
  Country: US (occurrence: US)
  Receive Date: 20161210
  Receipt Date: 20161210
  Transmission Date: 20170207
  Serious: No
  Sender: FDA-Public Use
  Company Number: US-ASTRAZENECA-2006BM07928

PATIENT
  Age: 71 Year
  Sex: Female
  Weight: 60.8 kg

DRUGS (16)
  1. ACTOS [Concomitant]
     Active Substance: PIOGLITAZONE HYDROCHLORIDE
     Dosage: 30 MG, QD
     Route: 048
  2. MULTI-BETIC [Concomitant]
     Indication: VITAMIN SUPPLEMENTATION
  3. BYETTA [Suspect]
     Active Substance: EXENATIDE
     Indication: TYPE 2 DIABETES MELLITUS
     Route: 058
     Dates: start: 200509, end: 200510
  4. BYETTA [Suspect]
     Active Substance: EXENATIDE
     Indication: TYPE 2 DIABETES MELLITUS
     Route: 058
  5. PLETAL [Concomitant]
     Active Substance: CILOSTAZOL
     Indication: ANTICOAGULANT THERAPY
  6. BYETTA [Suspect]
     Active Substance: EXENATIDE
     Indication: TYPE 2 DIABETES MELLITUS
     Route: 058
     Dates: start: 200510
  7. CALCIUM 600 PLUS D3 [Concomitant]
     Indication: BONE DISORDER
  8. LANTUS INSULIN SOLOSTAR [Concomitant]
  9. COREG [Concomitant]
     Active Substance: CARVEDILOL
     Indication: HYPERTENSION
  10. CLONODINE HCL [Concomitant]
     Indication: HYPERTENSION
  11. TRAMADOL. [Concomitant]
     Active Substance: TRAMADOL
     Indication: PAIN
  12. CRESTOR [Suspect]
     Active Substance: ROSUVASTATIN CALCIUM
     Indication: BLOOD CHOLESTEROL ABNORMAL
     Route: 048
  13. AMARYL [Concomitant]
     Active Substance: GLIMEPIRIDE
     Dosage: 4 MG, QD
     Route: 048
     Dates: end: 200510
  14. ASPIRIN. [Concomitant]
     Active Substance: ASPIRIN
     Indication: ANTICOAGULANT THERAPY
  15. LOTREL [Concomitant]
     Active Substance: AMLODIPINE BESYLATE\BENAZEPRIL HYDROCHLORIDE
     Indication: HYPERTENSION
  16. TRAMADOL. [Concomitant]
     Active Substance: TRAMADOL
     Indication: DIABETES MELLITUS

REACTIONS (8)
  - Peripheral swelling [Unknown]
  - Hypotension [Unknown]
  - Weight decreased [Not Recovered/Not Resolved]
  - Dizziness [Unknown]
  - Decreased appetite [Not Recovered/Not Resolved]
  - Nausea [Recovered/Resolved]
  - Cataract [Unknown]
  - Diabetes mellitus [Unknown]

NARRATIVE: CASE EVENT DATE: 2005
